FAERS Safety Report 4379968-8 (Version None)
Quarter: 2004Q2

REPORT INFORMATION
  Report Type: 
  Country: None (occurrence: None)
  Receive Date: 20040614
  Receipt Date: 20040601
  Transmission Date: 20050107
  Serious: Yes (Hospitalization)
  Sender: FDA-Public Use
  Company Number: IT-JNJFOC-20040400876

PATIENT
  Age: 73 Year
  Sex: Male

DRUGS (4)
  1. RISPERDAL [Suspect]
     Indication: DEMENTIA ALZHEIMER'S TYPE
     Dosage: 0.25 MG, 1 IN 1 DAY, ORAL
     Route: 048
  2. GLUCOPHAGE [Suspect]
     Indication: DEMENTIA ALZHEIMER'S TYPE
     Dosage: 1000 MG, IN 1 DAY
  3. HUMULIN 50/50 [Suspect]
     Indication: DEMENTIA
     Dosage: 24 IU, IN 1 DAY, SUBCUTANEOUS
     Route: 058
  4. HUMALOG (INSULIN LISPRO) INJECTION [Suspect]
     Indication: DEMENTIA
     Dosage: 24 IU, IN 1 DAY, SUBCUTANEOUS
     Route: 058

REACTIONS (6)
  - BRONCHOPNEUMONIA [None]
  - CONFUSIONAL STATE [None]
  - DEPRESSED LEVEL OF CONSCIOUSNESS [None]
  - ENTERITIS [None]
  - GASTROINTESTINAL DISORDER [None]
  - PYREXIA [None]
